FAERS Safety Report 7208874-6 (Version None)
Quarter: 2011Q1

REPORT INFORMATION
  Report Type: 
  Country: None (occurrence: None)
  Receive Date: 20110104
  Receipt Date: 20101228
  Transmission Date: 20110831
  Serious: Yes (Death, Other)
  Sender: FDA-Public Use
  Company Number: US-GENZYME-FLUD-1000578

PATIENT

DRUGS (11)
  1. GEMTUZUMAB [Suspect]
     Indication: TRANSPLANT
     Dosage: 2 MG/M2, QD ON DAY -12
     Route: 065
  2. AZACITIDINE [Suspect]
     Indication: ACUTE MYELOID LEUKAEMIA
     Dosage: UNK, 5X/W
     Route: 058
  3. MYCOPHENOLATE MOFETIL [Concomitant]
     Indication: PROPHYLAXIS AGAINST GRAFT VERSUS HOST DISEASE
     Dosage: UNK
     Route: 065
  4. FLUDARA [Suspect]
     Indication: TRANSPLANT
     Dosage: 30 MG/M2, QD ON DAYS -5, -4, -3, -2,
     Route: 065
  5. ANTI-THYMOCYTE GLOBULIN RABBIT NOS [Concomitant]
     Indication: PROPHYLAXIS AGAINST GRAFT VERSUS HOST DISEASE
     Dosage: 0.5 MG/KG, QD ON DAY -3
     Route: 065
  6. ANTI-THYMOCYTE GLOBULIN RABBIT NOS [Concomitant]
     Dosage: 1.25 MG/KG, QD ON DAY -2
     Route: 065
  7. TACROLIMUS [Concomitant]
     Indication: PROPHYLAXIS AGAINST GRAFT VERSUS HOST DISEASE
     Dosage: 5 MG/M2, QD ON DAY 1,3,6 AND 11
     Route: 065
  8. METHOTREXATE [Concomitant]
     Indication: PROPHYLAXIS AGAINST GRAFT VERSUS HOST DISEASE
     Dosage: 5 MG/M2,QD DAYS 1, 3, 6 AND 11
     Route: 065
  9. SIROLIMUS [Concomitant]
     Indication: PROPHYLAXIS AGAINST GRAFT VERSUS HOST DISEASE
     Dosage: UNK
     Route: 065
  10. ANTI-THYMOCYTE GLOBULIN RABBIT NOS [Suspect]
     Dosage: 1.25 MG/KG, QD ON DAY -1
     Route: 065
  11. MELPHALAN [Suspect]
     Indication: TRANSPLANT
     Dosage: 140 MG/M2, QD ON DAY -2
     Route: 065

REACTIONS (20)
  - MULTI-ORGAN FAILURE [None]
  - PNEUMONIA [None]
  - MOUTH ULCERATION [None]
  - CHOLECYSTITIS [None]
  - TRANSAMINASES INCREASED [None]
  - BLOOD CREATININE INCREASED [None]
  - PANCYTOPENIA [None]
  - FATIGUE [None]
  - PRURITUS [None]
  - CONJUNCTIVAL HYPERAEMIA [None]
  - PAPILLOEDEMA [None]
  - CONFUSIONAL STATE [None]
  - THROMBOCYTOPENIA [None]
  - GRAFT VERSUS HOST DISEASE [None]
  - DISEASE RECURRENCE [None]
  - RETINAL HAEMORRHAGE [None]
  - PULMONARY HAEMORRHAGE [None]
  - NEUTROPENIA [None]
  - NAUSEA [None]
  - PNEUMONIA FUNGAL [None]
